FAERS Safety Report 4674031-0 (Version None)
Quarter: 2005Q2

REPORT INFORMATION
  Report Type: 
  Country: None (occurrence: None)
  Receive Date: 20050525
  Receipt Date: 20050511
  Transmission Date: 20051028
  Serious: Yes (Other)
  Sender: FDA-Public Use
  Company Number: 2005070663

PATIENT
  Age: 35 Year
  Sex: Female

DRUGS (2)
  1. BEXTRA [Suspect]
     Indication: ACETABULUM FRACTURE
     Dosage: 20 MG (10 MG, 1 IN 1 D), ORAL
     Route: 048
     Dates: start: 20040901
  2. BEXTRA [Suspect]
     Indication: HIP FRACTURE
     Dosage: 20 MG (10 MG, 1 IN 1 D), ORAL
     Route: 048
     Dates: start: 20040901

REACTIONS (5)
  - DIZZINESS [None]
  - HALLUCINATION [None]
  - INSOMNIA [None]
  - SKIN DISCOLOURATION [None]
  - SOMNOLENCE [None]
